FAERS Safety Report 5648677-7 (Version None)
Quarter: 2008Q1

REPORT INFORMATION
  Report Type: 
  Country: None (occurrence: None)
  Receive Date: 20080304
  Receipt Date: 20080228
  Transmission Date: 20080703
  Serious: Yes (Other)
  Sender: FDA-Public Use
  Company Number: B0499609A

PATIENT
  Age: 80 Year
  Sex: Female

DRUGS (3)
  1. ARIXTRA [Suspect]
     Indication: PHLEBITIS
     Dosage: 7.5MG PER DAY
     Route: 058
     Dates: start: 20071101
  2. RIVOTRIL [Concomitant]
  3. STILNOX [Concomitant]

REACTIONS (1)
  - NEUTROPENIA [None]
